FAERS Safety Report 8850288 (Version 1)
Quarter: 2012Q4

REPORT INFORMATION
  Report Type: 
  Country: AR (occurrence: AR)
  Receive Date: 20121019
  Receipt Date: 20121019
  Transmission Date: 20130627
  Serious: Yes (Hospitalization, Other)
  Sender: FDA-Public Use
  Company Number: AR-PFIZER INC-2012254860

PATIENT
  Age: 87 Year
  Sex: Female

DRUGS (8)
  1. ZOLOFT [Suspect]
     Dosage: 50 mg, 1x/day
     Route: 048
     Dates: end: 2009
  2. ZOLOFT [Suspect]
     Dosage: UNK
     Route: 048
     Dates: start: 2012
  3. OMEPRAZOL [Concomitant]
     Dosage: UNK
     Dates: start: 201203
  4. ATORVASTATIN [Concomitant]
     Dosage: UNK
     Dates: start: 201203
  5. VALSARTAN [Concomitant]
     Dosage: UNK
     Dates: start: 201203
  6. ACETYLSALICYLIC ACID [Concomitant]
     Dosage: UNK
     Dates: start: 201203
  7. TRIMEBUTINE [Concomitant]
     Dosage: UNK
     Dates: start: 201209
  8. AMIODARONE [Concomitant]
     Dosage: UNK
     Dates: start: 201206

REACTIONS (2)
  - Cerebrovascular accident [Unknown]
  - Diarrhoea [Recovering/Resolving]
